FAERS Safety Report 19074180 (Version 2)
Quarter: 2021Q2

REPORT INFORMATION
  Report Type: Spontaneous
  Country: DE (occurrence: DE)
  Receive Date: 20210330
  Receipt Date: 20210420
  Transmission Date: 20210717
  Serious: Yes (Life-Threatening, Other)
  Sender: FDA-Public Use
  Company Number: DE-ACELRX PHARMACEUTICALS, INC-ACEL20210044

PATIENT
  Age: 58 Year
  Sex: Female

DRUGS (8)
  1. SOBELIN [Concomitant]
     Active Substance: CLINDAMYCIN HYDROCHLORIDE
     Indication: ANTIBIOTIC PROPHYLAXIS
     Dosage: 600 MG
  2. PANTOPRAZOLE [Concomitant]
     Active Substance: PANTOPRAZOLE
     Dosage: 20 MG (0?0?1)
  3. FORTECORTIN [Concomitant]
     Active Substance: DEXAMETHASONE
     Dosage: 4 MG
  4. ONDANSETRON [Concomitant]
     Active Substance: ONDANSETRON
     Dosage: 4 MG
  5. DIPIDOLOR [Concomitant]
     Active Substance: PIRITRAMIDE
     Indication: PAIN
     Dosage: 30 MG
  6. L?THYROXIN [Concomitant]
     Active Substance: LEVOTHYROXINE SODIUM
     Dosage: 50 MCG/25 MCG
  7. ZALVISO [Suspect]
     Active Substance: SUFENTANIL CITRATE
     Indication: PROCEDURAL PAIN
     Dosage: 15 MCG
     Route: 060
     Dates: start: 20210317, end: 20210317
  8. DYNASTAT [Concomitant]
     Active Substance: PARECOXIB SODIUM
     Dosage: 40 MG

REACTIONS (2)
  - Cardiac arrest [Recovered/Resolved]
  - Respiratory depression [Recovered/Resolved]

NARRATIVE: CASE EVENT DATE: 20210317
